FAERS Safety Report 10039350 (Version 2)
Quarter: 2014Q3

REPORT INFORMATION
  Report Type: Spontaneous
  Country: US (occurrence: US)
  Receive Date: 20140326
  Receipt Date: 20140711
  Transmission Date: 20150326
  Serious: Yes (Other)
  Sender: FDA-Public Use
  Company Number: US-PFIZER INC-2014081981

PATIENT
  Age: 30 Year
  Sex: Female

DRUGS (1)
  1. PRISTIQ EXTENDED RELEASE [Suspect]
     Active Substance: DESVENLAFAXINE SUCCINATE
     Indication: MAJOR DEPRESSION
     Dosage: 50 MG, DAILY
     Route: 048
     Dates: start: 2013, end: 201310

REACTIONS (6)
  - Vertigo [Recovered/Resolved]
  - Vision blurred [Recovered/Resolved]
  - Activities of daily living impaired [Recovered/Resolved]
  - Drug withdrawal syndrome [Unknown]
  - Confusional state [Recovered/Resolved]
  - Dissociation [Recovered/Resolved]

NARRATIVE: CASE EVENT DATE: 201310
